FAERS Safety Report 21847636 (Version 1)
Quarter: 2023Q1

REPORT INFORMATION
  Report Type: Spontaneous
  Country: US (occurrence: US)
  Receive Date: 20230111
  Receipt Date: 20230111
  Transmission Date: 20230417
  Serious: No
  Sender: FDA-Public Use
  Company Number: US-BRISTOL-MYERS SQUIBB COMPANY-2023-004547

PATIENT
  Age: 64 Year
  Sex: Female

DRUGS (1)
  1. SOTYKTU [Suspect]
     Active Substance: DEUCRAVACITINIB
     Indication: Psoriasis
     Route: 048
     Dates: start: 20230101

REACTIONS (5)
  - Headache [Recovered/Resolved]
  - Chest discomfort [Recovered/Resolved]
  - Nervous system disorder [Recovered/Resolved]
  - Cardiac disorder [Recovered/Resolved]
  - Product dose omission issue [Unknown]
